FAERS Safety Report 5131706-7 (Version None)
Quarter: 2006Q4

REPORT INFORMATION
  Report Type: 
  Country: None (occurrence: None)
  Receive Date: 20061020
  Receipt Date: 20061017
  Transmission Date: 20070319
  Serious: Yes (Other)
  Sender: FDA-Public Use
  Company Number: US-BOEHRINGER INGELHEIM PHARMACEUTICALS, INC.-2006-BP-12211BP

PATIENT
  Age: 82 Year
  Sex: Male

DRUGS (6)
  1. FLOMAX [Suspect]
     Indication: PROSTATE EXAMINATION ABNORMAL
     Route: 048
     Dates: start: 20030101
  2. LEXAPRO [Suspect]
     Indication: INSOMNIA
     Route: 048
     Dates: start: 20060921
  3. LEXAPRO [Suspect]
     Indication: ANXIETY
  4. GLUCOPHAGE [Concomitant]
     Dates: start: 20060927
  5. BENICAR [Concomitant]
     Dates: start: 20040101
  6. LIPITOR [Concomitant]

REACTIONS (6)
  - COLON CANCER [None]
  - DRUG INTERACTION [None]
  - DYSURIA [None]
  - LOSS OF LIBIDO [None]
  - SOMNOLENCE [None]
  - URINARY RETENTION [None]
